FAERS Safety Report 9254581 (Version 1)
Quarter: 2013Q2

REPORT INFORMATION
  Report Type: Spontaneous
  Country: DE (occurrence: DE)
  Receive Date: 20130425
  Receipt Date: 20130425
  Transmission Date: 20140414
  Serious: Yes (Other)
  Sender: FDA-Public Use
  Company Number: DE-PFIZER INC-2013126284

PATIENT
  Sex: 0

DRUGS (3)
  1. LYRICA [Suspect]
     Dosage: 300 MG, UNK
  2. LYRICA [Suspect]
     Dosage: 1500 MG, DAILY
  3. METHADONE [Concomitant]
     Indication: DRUG WITHDRAWAL MAINTENANCE THERAPY

REACTIONS (1)
  - Drug abuse [Unknown]
